FAERS Safety Report 9425330 (Version 1)
Quarter: 2013Q3

REPORT INFORMATION
  Report Type: Report from Study
  Country: CA (occurrence: CA)
  Receive Date: 20130729
  Receipt Date: 20130729
  Transmission Date: 20140515
  Serious: Yes (Other)
  Sender: FDA-Public Use
  Company Number: CA-JNJFOC-20130715924

PATIENT
  Sex: Male
  Weight: 75 kg

DRUGS (2)
  1. REMICADE [Suspect]
     Indication: CROHN^S DISEASE
     Route: 042
     Dates: start: 20120801
  2. METHOTREXATE [Concomitant]
     Dosage: ONCE WEEKLY
     Route: 058

REACTIONS (1)
  - Inguinal hernia [Recovered/Resolved]
